FAERS Safety Report 8177732-5 (Version None)
Quarter: 2012Q1

REPORT INFORMATION
  Report Type: 
  Country: None (occurrence: None)
  Receive Date: 20120301
  Receipt Date: 20120220
  Transmission Date: 20120608
  Serious: Yes (Hospitalization)
  Sender: FDA-Public Use
  Company Number: US-BAYER-2011-122047

PATIENT
  Age: 26 Year
  Sex: Female
  Weight: 70 kg

DRUGS (9)
  1. ASCORBIC ACID [Concomitant]
     Dosage: UNK UNK, PRN
  2. OXYCODONE HCL AND ACETAMINOPHEN [Concomitant]
     Indication: PAIN
     Dosage: UNK
  3. AMLODIPINE [Concomitant]
  4. CARVEDILOL [Concomitant]
  5. YAZ [Suspect]
     Indication: CONTRACEPTION
     Dosage: UNK
     Route: 048
     Dates: start: 20070914, end: 20091210
  6. ETODOLAC [Concomitant]
  7. EXCEDRIN [Concomitant]
     Indication: MIGRAINE
     Dosage: UNK UNK, PRN
  8. HYDROCHLOROTHIAZIDE [Concomitant]
  9. FLUTICASONE PROPIONATE [Concomitant]

REACTIONS (2)
  - GALLBLADDER DISORDER [None]
  - CHOLECYSTITIS ACUTE [None]
